FAERS Safety Report 9199287 (Version 1)
Quarter: 2013Q1

REPORT INFORMATION
  Report Type: Spontaneous
  Country: US (occurrence: None)
  Receive Date: 20130325
  Receipt Date: 20130325
  Transmission Date: 20140127
  Serious: Yes (Hospitalization)
  Sender: FDA-Public Use
  Company Number: 2013US-004572

PATIENT
  Age: 24 Year
  Sex: Female
  Weight: 65 kg

DRUGS (13)
  1. OMONTYS (PEGINESATIDE) SOLUTION FOR INJECTION [Suspect]
     Indication: NEPHROGENIC ANAEMIA
     Route: 042
     Dates: start: 20130209, end: 20130209
  2. PRINIVIL (LISINOPRIL DIHYDRATE) [Concomitant]
  3. COREG (CARVEDILOL) [Concomitant]
  4. PRAVACHOL (PRAVASTATIN SODIUM) [Concomitant]
  5. NEPHROCAPS (ASCORBIC ACID, BIOTIN, CYANOCOBALAMIN, FOLIC ACID, NICOTINAMIDE, PANTOTHENIC ACID, PYRIDOXINE HYDROCHLORIDE, RIBOFLAVIN, THIAMINE HYDROCHLORIDE) [Concomitant]
  6. PHOSLO (CALCIUM ACETATE) [Concomitant]
  7. TYLENOL (PARACETAMOL) [Concomitant]
  8. ZEMPLAR (PARICALCITOL) [Concomitant]
  9. HEPARIN (HEPARIN) [Concomitant]
  10. BENADRYL (DIPHENHYDRAMINE HYDROCHLORIDE) [Concomitant]
  11. ASPIRIN (ACETYLSALICYLIC ACID) [Concomitant]
  12. BACTRIM [Concomitant]
  13. TUMS (CALCIUM CARBONATE, MAGNESIUM CARBONATE, MAGNESIUM TRISILICATE) [Concomitant]

REACTIONS (10)
  - Lip swelling [None]
  - Tachycardia [None]
  - Swelling face [None]
  - Dyspnoea [None]
  - Hypertension [None]
  - Dysphagia [None]
  - Feeling hot [None]
  - Hypoaesthesia [None]
  - Hypokalaemia [None]
  - Anaphylactic reaction [None]
